FAERS Safety Report 6488809-4 (Version None)
Quarter: 2009Q4

REPORT INFORMATION
  Report Type: 
  Country: None (occurrence: None)
  Receive Date: 20091210
  Receipt Date: 20091201
  Transmission Date: 20100525
  Serious: Yes (Other)
  Sender: FDA-Public Use
  Company Number: US-PFIZER INC-2009264529

PATIENT
  Sex: Female
  Weight: 56.689 kg

DRUGS (11)
  1. CHANTIX [Suspect]
     Indication: NICOTINE DEPENDENCE
     Dosage: 1 MG, UNK
     Route: 048
  2. LEXAPRO [Concomitant]
  3. NICOTROL [Concomitant]
  4. BENTYL [Concomitant]
  5. PRIMIDONE [Concomitant]
  6. NEFAZODONE [Concomitant]
  7. ABILIFY [Concomitant]
  8. LITHIUM CARBONATE [Concomitant]
  9. DOXEPIN [Concomitant]
  10. KLONOPIN [Concomitant]
  11. ADDERALL 10 [Concomitant]

REACTIONS (1)
  - DEPRESSION [None]
